FAERS Safety Report 18550109 (Version 4)
Quarter: 2022Q4

REPORT INFORMATION
  Report Type: Other
  Country: JP (occurrence: JP)
  Receive Date: 20201126
  Receipt Date: 20221014
  Transmission Date: 20230113
  Serious: Yes (Hospitalization, Other)
  Sender: FDA-Public Use
  Company Number: JP-CHUGAI-A2020050571ROCHE

PATIENT
  Age: 79 Year
  Sex: Female
  Weight: 45.7 kg

DRUGS (2)
  1. ENTRECTINIB [Suspect]
     Active Substance: ENTRECTINIB
     Indication: Non-small cell lung cancer
     Route: 048
     Dates: start: 20201105, end: 20201115
  2. ENTRECTINIB [Suspect]
     Active Substance: ENTRECTINIB
     Dosage: MOST RECENT DOSE : 04/NOV/2021
     Route: 048
     Dates: start: 20201124

REACTIONS (2)
  - Pneumonia aspiration [Recovered/Resolved with Sequelae]
  - Cognitive disorder [Recovering/Resolving]

NARRATIVE: CASE EVENT DATE: 20201111
